FAERS Safety Report 10173111 (Version 1)
Quarter: 2014Q2

REPORT INFORMATION
  Report Type: Report from Study
  Country: CA (occurrence: CA)
  Receive Date: 20140515
  Receipt Date: 20140515
  Transmission Date: 20141212
  Serious: Yes (Other)
  Sender: FDA-Public Use
  Company Number: CA-ROCHE-1400736

PATIENT
  Sex: Male
  Weight: 86.3 kg

DRUGS (12)
  1. RITUXAN [Suspect]
     Indication: RHEUMATOID ARTHRITIS
     Dosage: FREQUENCY: 15 DAYS. LAST DOSE PRIOR TO SAE 29/AUG/2012.
     Route: 042
     Dates: start: 20100121
  2. ACETAMINOPHEN [Concomitant]
     Indication: PREMEDICATION
     Route: 048
     Dates: start: 20100121
  3. METHYLPREDNISOLONE [Concomitant]
     Indication: PREMEDICATION
     Route: 042
     Dates: start: 20100121
  4. ELTROXIN [Concomitant]
  5. APO-PREDNISONE [Concomitant]
  6. ARAVA [Concomitant]
  7. PANTOPRAZOLE [Concomitant]
  8. RANITIDINE [Concomitant]
  9. DOMPERIDONE [Concomitant]
  10. VITAMIN B12 [Concomitant]
  11. OMEGA 3 [Concomitant]
  12. CEFUROXIME [Concomitant]
     Route: 065
     Dates: end: 201403

REACTIONS (3)
  - Cyanosis [Unknown]
  - Blood iron decreased [Unknown]
  - Weight decreased [Unknown]
